FAERS Safety Report 8777852 (Version 2)
Quarter: 2012Q4

REPORT INFORMATION
  Report Type: 
  Country: ZA (occurrence: ZA)
  Receive Date: 20120911
  Receipt Date: 20120918
  Transmission Date: 20130627
  Serious: Yes (Hospitalization, Other)
  Sender: FDA-Public Use
  Company Number: PHHY2012ZA077879

PATIENT
  Sex: Female

DRUGS (2)
  1. ESTRADERM [Suspect]
     Route: 062
  2. ESTRADERM [Suspect]
     Dosage: UNK UKN, UNK
     Route: 062
     Dates: start: 2004

REACTIONS (20)
  - Ulcer haemorrhage [Unknown]
  - Gastric ulcer [Unknown]
  - Mouth ulceration [Unknown]
  - Schizophrenia [Unknown]
  - Upper limb fracture [Unknown]
  - Osteoporosis [Unknown]
  - Bone density decreased [Unknown]
  - Hypertension [Unknown]
  - Blood cholesterol increased [Unknown]
  - Face injury [Unknown]
  - Breast disorder [Unknown]
  - Gastrooesophageal reflux disease [Unknown]
  - Arthritis [Unknown]
  - Nodule [Unknown]
  - Dyskinesia [Unknown]
  - Movement disorder [Unknown]
  - Epilepsy [Unknown]
  - Discomfort [Unknown]
  - Suicide of relative [None]
  - Nipple disorder [None]
